FAERS Safety Report 22052371 (Version 1)
Quarter: 2023Q1

REPORT INFORMATION
  Report Type: Report from Study
  Country: US (occurrence: US)
  Receive Date: 20230302
  Receipt Date: 20230302
  Transmission Date: 20230418
  Serious: Yes (Hospitalization, Other)
  Sender: FDA-Public Use
  Company Number: US-EXELIXIS-CABO-23060969

PATIENT
  Age: 61 Year
  Sex: Male
  Weight: 72.109 kg

DRUGS (1)
  1. CABOMETYX [Suspect]
     Active Substance: CABOZANTINIB S-MALATE
     Indication: Renal cancer
     Dosage: 40 MG, QD
     Route: 048
     Dates: start: 20230216, end: 202302

REACTIONS (5)
  - Bladder pain [Unknown]
  - Urinary bladder haemorrhage [Recovered/Resolved]
  - Haemoglobin decreased [Unknown]
  - Fatigue [Unknown]
  - Bladder mass [Unknown]

NARRATIVE: CASE EVENT DATE: 20230201
